FAERS Safety Report 9726746 (Version 1)
Quarter: 2013Q4

REPORT INFORMATION
  Report Type: Spontaneous
  Country: IT (occurrence: None)
  Receive Date: 20131129
  Receipt Date: 20131129
  Transmission Date: 20140711
  Serious: Yes (Other)
  Sender: FDA-Public Use
  Company Number: SYM-2013-13194

PATIENT
  Age: 51 Year
  Sex: Male

DRUGS (3)
  1. FLUOROURACIL [Suspect]
     Indication: ADENOCARCINOMA OF COLON
     Dates: start: 200506
  2. FOLINIC ACID [Suspect]
     Indication: ADENOCARCINOMA OF COLON
     Dates: start: 200506
  3. OXALIPLATIN [Suspect]
     Indication: ADENOCARCINOMA OF COLON
     Dates: start: 200506

REACTIONS (4)
  - Palmar-plantar erythrodysaesthesia syndrome [None]
  - Neuropathy peripheral [None]
  - Nausea [None]
  - Diarrhoea [None]
